FAERS Safety Report 5426027-9 (Version None)
Quarter: 2007Q3

REPORT INFORMATION
  Report Type: 
  Country: None (occurrence: None)
  Receive Date: 20070827
  Receipt Date: 20070821
  Transmission Date: 20080115
  Serious: Yes (Other)
  Sender: FDA-Public Use
  Company Number: US-GENENTECH-245541

PATIENT
  Sex: Female
  Weight: 91.61 kg

DRUGS (11)
  1. RAPTIVA [Suspect]
     Indication: PSORIASIS
     Dosage: 66 MG, UNKNOWN
     Route: 065
     Dates: start: 20070701
  2. RAPTIVA [Suspect]
     Dosage: 94 MG, 1/WEEK
     Route: 058
     Dates: start: 20070713
  3. POTASSIUM CHLORIDE [Concomitant]
     Indication: DRUG USE FOR UNKNOWN INDICATION
     Dosage: 10 MG, BID
     Route: 065
  4. ZOCOR [Concomitant]
     Indication: DRUG USE FOR UNKNOWN INDICATION
     Dosage: 10 MG, QD
     Route: 065
  5. LASIX [Concomitant]
     Indication: HYPERTENSION
     Dosage: 20 MG, BID
     Route: 065
  6. COZAAR [Concomitant]
     Indication: DRUG USE FOR UNKNOWN INDICATION
     Dosage: 50 MG, QD
     Route: 065
  7. VERAPAMIL [Concomitant]
     Indication: BLOOD CHOLESTEROL INCREASED
     Dosage: 240 MG, QD
     Route: 065
  8. VERAPAMIL [Concomitant]
     Indication: HYPERTENSION
  9. SLOW-MAG [Concomitant]
     Indication: DRUG USE FOR UNKNOWN INDICATION
  10. CALCIUM [Concomitant]
     Indication: DRUG USE FOR UNKNOWN INDICATION
     Dosage: UNK, UNKNOWN
     Route: 065
  11. ASPIRIN [Concomitant]
     Indication: DRUG USE FOR UNKNOWN INDICATION
     Dosage: 81 MG, QD
     Route: 065

REACTIONS (3)
  - CARDIAC FLUTTER [None]
  - HEART RATE INCREASED [None]
  - HOT FLUSH [None]
